FAERS Safety Report 6916668-1 (Version None)
Quarter: 2010Q3

REPORT INFORMATION
  Report Type: 
  Country: None (occurrence: None)
  Receive Date: 20100805
  Receipt Date: 20100730
  Transmission Date: 20110219
  Serious: Yes (Hospitalization)
  Sender: FDA-Public Use
  Company Number: 2010SP041488

PATIENT
  Age: 86 Year
  Sex: Female

DRUGS (12)
  1. MIRTAZAPINE [Suspect]
     Indication: DEPRESSION
     Dosage: 45 MG; QD
     Dates: end: 20100330
  2. OXAZEPAM [Suspect]
     Indication: DEPRESSION
     Dosage: 30 MG; QD
     Dates: end: 20100330
  3. ALVEDON [Concomitant]
  4. ALENAT [Concomitant]
  5. METOPROLOL TARTRATE [Concomitant]
  6. SIMVASTATIN [Concomitant]
  7. XYLOPROCT [Concomitant]
  8. IMPUGAN [Concomitant]
  9. DAKTACORT [Concomitant]
  10. ASPIRIN [Concomitant]
  11. KALCIPOS-D [Concomitant]
  12. PROPYLESS [Concomitant]

REACTIONS (4)
  - CONDITION AGGRAVATED [None]
  - DEPRESSION [None]
  - HYPOTHERMIA [None]
  - SOMNOLENCE [None]
